FAERS Safety Report 13116749 (Version 1)
Quarter: 2017Q1

REPORT INFORMATION
  Report Type: Report from Study
  Country: BE (occurrence: BE)
  Receive Date: 20170116
  Receipt Date: 20170116
  Transmission Date: 20170428
  Serious: Yes (Hospitalization)
  Sender: FDA-Public Use
  Company Number: BE-ROCHE-1875308

PATIENT
  Age: 83 Year
  Sex: Female
  Weight: 63.2 kg

DRUGS (10)
  1. AMLODIPINE [Concomitant]
     Active Substance: AMLODIPINE BESYLATE
     Route: 065
  2. HUMULINE 30/70 [Concomitant]
     Route: 065
  3. VEMURAFENIB [Suspect]
     Active Substance: VEMURAFENIB
     Indication: MALIGNANT MELANOMA
     Dosage: DATE OF LAST DOSE PRIOR TO SAE 30/DEC/2016
     Route: 048
     Dates: start: 20161205
  4. QUETIAPINE. [Concomitant]
     Active Substance: QUETIAPINE
     Route: 065
  5. ZOPICLONE [Concomitant]
     Active Substance: ZOPICLONE
     Dosage: ZOPICLONE EG
     Route: 065
  6. TOTALIP [Concomitant]
     Active Substance: ATORVASTATIN
     Route: 065
  7. COBIMETINIB [Suspect]
     Active Substance: COBIMETINIB
     Indication: MALIGNANT MELANOMA
     Dosage: DATE OF LAST DOSE PRIOR TO SAE 25/DEC/2016
     Route: 048
     Dates: start: 20161205
  8. TARDYFERON (BELGIUM) [Concomitant]
     Route: 065
  9. OMEPRAZOL APOTEX [Concomitant]
     Route: 065
  10. METFORMAX [Concomitant]
     Active Substance: METFORMIN HYDROCHLORIDE
     Route: 065

REACTIONS (1)
  - Atrial fibrillation [Recovering/Resolving]

NARRATIVE: CASE EVENT DATE: 20161230
